FAERS Safety Report 15692365 (Version 3)
Quarter: 2019Q1

REPORT INFORMATION
  Report Type: Spontaneous
  Country: IT (occurrence: IT)
  Receive Date: 20181205
  Receipt Date: 20190124
  Transmission Date: 20190417
  Serious: Yes (Hospitalization, Other)
  Sender: FDA-Public Use
  Company Number: IT-AUROBINDO-AUR-APL-2018-058238

PATIENT
  Age: 73 Year
  Sex: Female

DRUGS (4)
  1. ACICLOVIR TABLETS [Suspect]
     Active Substance: ACYCLOVIR
     Dosage: 400 MILLIGRAM, ONCE A DAY
     Route: 048
  2. ACICLOVIR TABLETS [Suspect]
     Active Substance: ACYCLOVIR
     Indication: HERPES ZOSTER
     Dosage: 50 MILLIGRAM, DAILY
     Route: 048
     Dates: start: 20181113, end: 20181119
  3. OLPREZIDE [Concomitant]
     Active Substance: HYDROCHLOROTHIAZIDE\OLMESARTAN MEDOXOMIL
     Indication: PRODUCT USED FOR UNKNOWN INDICATION
     Dosage: UNK
     Route: 065
  4. DICLOREUM                          /00372301/ [Suspect]
     Active Substance: DICLOFENAC SODIUM
     Indication: BACK PAIN
     Route: 048
     Dates: start: 20181113, end: 20181119

REACTIONS (1)
  - Rectal haemorrhage [Recovering/Resolving]

NARRATIVE: CASE EVENT DATE: 20181119
